FAERS Safety Report 25136574 (Version 1)
Quarter: 2025Q1

REPORT INFORMATION
  Report Type: Spontaneous
  Country: US (occurrence: US)
  Receive Date: 20250328
  Receipt Date: 20250328
  Transmission Date: 20250408
  Serious: No
  Sender: MERCK SHARP & DOHME LLC
  Company Number: US-009507513-2264837

PATIENT
  Age: 82 Year
  Sex: Male

DRUGS (15)
  1. KEYTRUDA [Suspect]
     Active Substance: PEMBROLIZUMAB
     Indication: Lung neoplasm malignant
     Route: 042
     Dates: start: 20241125
  2. HYDROXYZINE [Concomitant]
     Active Substance: HYDROXYZINE HYDROCHLORIDE
  3. FINASTERIDE [Concomitant]
     Active Substance: FINASTERIDE
  4. Albuterol inhalers [Concomitant]
  5. ATROVENT [Concomitant]
     Active Substance: IPRATROPIUM BROMIDE
  6. MELOXICAM [Concomitant]
     Active Substance: MELOXICAM
  7. PRILOSEC [Concomitant]
     Active Substance: OMEPRAZOLE MAGNESIUM
  8. PRAVASTATIN [Concomitant]
     Active Substance: PRAVASTATIN
  9. LYRICA [Concomitant]
     Active Substance: PREGABALIN
  10. ZOLOFT [Concomitant]
     Active Substance: SERTRALINE HYDROCHLORIDE
  11. TAMSULOSIN [Concomitant]
     Active Substance: TAMSULOSIN
  12. Kenalog cream [Concomitant]
  13. SPIRIVA [Concomitant]
     Active Substance: TIOTROPIUM BROMIDE MONOHYDRATE
  14. Respimat [Concomitant]
  15. WIXELA INHUB [Concomitant]
     Active Substance: FLUTICASONE PROPIONATE\SALMETEROL XINAFOATE

REACTIONS (2)
  - Breast tenderness [Not Recovered/Not Resolved]
  - Productive cough [Not Recovered/Not Resolved]

NARRATIVE: CASE EVENT DATE: 20250224
